FAERS Safety Report 9365009 (Version 1)
Quarter: 2013Q2

REPORT INFORMATION
  Report Type: Spontaneous
  Country: US (occurrence: US)
  Receive Date: 20130624
  Receipt Date: 20130624
  Transmission Date: 20140414
  Serious: No
  Sender: FDA-Public Use
  Company Number: US-PFIZER INC-2013187617

PATIENT
  Age: 65 Year
  Sex: Male
  Weight: 92.97 kg

DRUGS (5)
  1. CELEBREX [Suspect]
     Indication: ANALGESIC THERAPY
     Dosage: UNK, 1X/DAY
     Dates: start: 2013
  2. LORTAB [Suspect]
     Indication: PAIN
     Dosage: UNK, 1X/DAY
  3. LORTAB [Suspect]
     Indication: SLEEP DISORDER
  4. FISH OIL [Concomitant]
     Indication: BLOOD CHOLESTEROL ABNORMAL
     Dosage: UNK
  5. FISH OIL [Concomitant]
     Indication: ARTHRALGIA

REACTIONS (4)
  - Drug ineffective [Unknown]
  - Tendon disorder [Not Recovered/Not Resolved]
  - Musculoskeletal pain [Not Recovered/Not Resolved]
  - Arthralgia [Not Recovered/Not Resolved]
